FAERS Safety Report 9874029 (Version 2)
Quarter: 2014Q1

REPORT INFORMATION
  Report Type: Other
  Country: US (occurrence: US)
  Receive Date: 20140206
  Receipt Date: 20140206
  Transmission Date: 20141002
  Serious: No
  Sender: FDA-Public Use
  Company Number: US-ACORDA-ACO_31268_2012

PATIENT
  Age: 52 Year
  Sex: Female
  Weight: 87.98 kg

DRUGS (3)
  1. AMPYRA [Suspect]
     Indication: GAIT DISTURBANCE
     Dosage: 10 MG, Q 12 HRS
     Dates: start: 2012, end: 201208
  2. BETASERON [Concomitant]
     Indication: MULTIPLE SCLEROSIS
     Dosage: 0.3 UNK, QOD
     Route: 058
     Dates: start: 20050719
  3. ANTIHYPERTENSIVES [Concomitant]
     Indication: PRODUCT USED FOR UNKNOWN INDICATION
     Dosage: UNK

REACTIONS (2)
  - Pain [Unknown]
  - Urinary tract infection [Recovered/Resolved]
